FAERS Safety Report 19826765 (Version 1)
Quarter: 2021Q3

REPORT INFORMATION
  Report Type: Spontaneous
  Country: US (occurrence: US)
  Receive Date: 20210910
  Receipt Date: 20210910
  Transmission Date: 20211014
  Serious: No
  Sender: FDA-Public Use
  Company Number: None

PATIENT
  Sex: Female

DRUGS (1)
  1. HUMIRA [Suspect]
     Active Substance: ADALIMUMAB
     Indication: PSORIASIS
     Route: 058

REACTIONS (8)
  - Skin plaque [None]
  - Pain [None]
  - Joint swelling [None]
  - Fatigue [None]
  - Neuropathy peripheral [None]
  - Therapy interrupted [None]
  - Drug ineffective [None]
  - Paraesthesia [None]
